FAERS Safety Report 8259448-X (Version None)
Quarter: 2012Q2

REPORT INFORMATION
  Report Type: 
  Country: None (occurrence: None)
  Receive Date: 20120404
  Receipt Date: 20120327
  Transmission Date: 20120825
  Serious: Yes (Hospitalization)
  Sender: FDA-Public Use
  Company Number: US-ACTELION-A-US2009-25341

PATIENT

DRUGS (12)
  1. SILDENAFIL [Concomitant]
  2. OXYGEN [Concomitant]
  3. OMEPRAZOLE [Concomitant]
  4. CALCIUM CARBONATE [Concomitant]
  5. GUAIFENESIN [Concomitant]
  6. PANTOPRAZOLE [Concomitant]
  7. CEPACOL [Concomitant]
  8. PREDNISONE TAB [Suspect]
     Dosage: 5 MG, QD
  9. ALMIN [Concomitant]
  10. IRON [Concomitant]
  11. DIFENHYDRAMIN [Concomitant]
  12. TRACLEER [Suspect]
     Indication: PULMONARY ARTERIAL HYPERTENSION
     Dosage: 125 MG, BID
     Route: 048
     Dates: start: 20090313

REACTIONS (15)
  - TACHYCARDIA [None]
  - JUVENILE ARTHRITIS [None]
  - RASH [None]
  - PAIN [None]
  - PYREXIA [None]
  - ARTHRALGIA [None]
  - DYSPNOEA [None]
  - COUGH [None]
  - CONDITION AGGRAVATED [None]
  - PULMONARY ARTERIAL HYPERTENSION [None]
  - HYPOKALAEMIA [None]
  - IMMUNODEFICIENCY [None]
  - WHEEZING [None]
  - HYPOXIA [None]
  - GASTROOESOPHAGEAL REFLUX DISEASE [None]
